FAERS Safety Report 6196256-8 (Version None)
Quarter: 2009Q2

REPORT INFORMATION
  Report Type: 
  Country: None (occurrence: None)
  Receive Date: 20090520
  Receipt Date: 20090508
  Transmission Date: 20091009
  Serious: Yes (Hospitalization)
  Sender: FDA-Public Use
  Company Number: JP-AMGEN-US347336

PATIENT
  Age: 57 Year
  Sex: Female

DRUGS (3)
  1. ENBREL [Suspect]
     Indication: RHEUMATOID ARTHRITIS
     Dosage: UNSPECIFIED
     Route: 058
     Dates: start: 20070601
  2. ENBREL [Suspect]
     Indication: SCLERODERMA
  3. UNSPECIFIED STEROIDS [Concomitant]

REACTIONS (1)
  - MICROSCOPIC POLYANGIITIS [None]
